FAERS Safety Report 9263724 (Version 1)
Quarter: 2013Q2

REPORT INFORMATION
  Report Type: Spontaneous
  Country: US (occurrence: US)
  Receive Date: 20130430
  Receipt Date: 20130430
  Transmission Date: 20140414
  Serious: Yes (Other)
  Sender: FDA-Public Use
  Company Number: PHEH2013US008919

PATIENT
  Sex: Female

DRUGS (9)
  1. METOPROLOL [Suspect]
     Dosage: UNK UKN, UNK
  2. DIOVAN [Suspect]
     Dosage: UNK UKN, UNK
  3. LISINOPRIL [Suspect]
  4. CARVEDILOL [Suspect]
     Dosage: UNK UKN, UNK
  5. VOLTAREN GEL [Suspect]
     Dosage: 2 G, QD
     Dates: start: 20110330
  6. ZOCOR [Suspect]
  7. CRESTOR [Suspect]
  8. RAMPIL [Suspect]
     Dosage: 5 MG, UNK
     Dates: start: 201203
  9. VITAMIN E [Concomitant]

REACTIONS (8)
  - Arterial rupture [Unknown]
  - Muscle injury [Unknown]
  - Cataract [Unknown]
  - Malaise [Recovered/Resolved]
  - Vomiting [Recovered/Resolved]
  - Dizziness [Recovered/Resolved]
  - Rash [Unknown]
  - Dyspnoea [Unknown]
